FAERS Safety Report 5353080-3 (Version None)
Quarter: 2007Q2

REPORT INFORMATION
  Report Type: 
  Country: None (occurrence: None)
  Receive Date: 20070611
  Receipt Date: 20070531
  Transmission Date: 20071010
  Serious: Yes (Other)
  Sender: FDA-Public Use
  Company Number: US-PFIZER INC-2007044974

PATIENT
  Sex: Female

DRUGS (1)
  1. GEODON [Suspect]
     Dates: start: 20040101, end: 20060101

REACTIONS (1)
  - TARDIVE DYSKINESIA [None]
